FAERS Safety Report 5732890-4 (Version None)
Quarter: 2008Q2

REPORT INFORMATION
  Report Type: 
  Country: None (occurrence: None)
  Receive Date: 20080509
  Receipt Date: 20080213
  Transmission Date: 20081010
  Serious: No
  Sender: FDA-Public Use
  Company Number: A0709371A

PATIENT
  Age: 87 Year
  Sex: Female

DRUGS (6)
  1. COREG CR [Suspect]
     Indication: HYPERTENSION
     Dosage: 10MG PER DAY
     Route: 048
     Dates: start: 20070801
  2. WARFARIN SODIUM [Concomitant]
  3. CATAPRES [Concomitant]
  4. DETROL [Concomitant]
  5. LOTREL [Concomitant]
  6. SUPER B COMPLEX [Concomitant]

REACTIONS (5)
  - ASTHENIA [None]
  - FATIGUE [None]
  - FOREIGN BODY SENSATION IN EYES [None]
  - POLLAKIURIA [None]
  - SENSORY DISTURBANCE [None]
